FAERS Safety Report 4325985-3 (Version None)
Quarter: 2004Q1

REPORT INFORMATION
  Report Type: 
  Country: None (occurrence: None)
  Receive Date: 20040329
  Receipt Date: 20040317
  Transmission Date: 20041129
  Serious: Yes (Life-Threatening, Hospitalization)
  Sender: FDA-Public Use
  Company Number: JP-GLAXOSMITHKLINE-B0326971A

PATIENT
  Age: 20 Year
  Sex: Male

DRUGS (6)
  1. SAWACILLIN [Suspect]
     Indication: UPPER RESPIRATORY TRACT INFLAMMATION
     Dosage: 750MG PER DAY
     Route: 048
     Dates: start: 20040312, end: 20040312
  2. CEFDINIR [Suspect]
     Indication: UPPER RESPIRATORY TRACT INFLAMMATION
     Dosage: 300MG PER DAY
     Route: 048
     Dates: start: 20040310, end: 20040312
  3. PL [Suspect]
     Dosage: 3G PER DAY
     Route: 048
     Dates: start: 20040312, end: 20040312
  4. VOLTAREN [Suspect]
     Dosage: 50MG PER DAY
     Dates: start: 20040312, end: 20040312
  5. LOXONIN [Suspect]
     Dosage: 180MG PER DAY
     Route: 048
     Dates: start: 20040310, end: 20040312
  6. METAMIZOLE SODIUM [Suspect]
     Route: 030
     Dates: start: 20040310, end: 20040310

REACTIONS (1)
  - ACUTE RESPIRATORY FAILURE [None]
